FAERS Safety Report 13621705 (Version 2)
Quarter: 2017Q4

REPORT INFORMATION
  Report Type: Spontaneous
  Country: US (occurrence: US)
  Receive Date: 20170607
  Receipt Date: 20171227
  Transmission Date: 20180320
  Serious: Yes (Other)
  Sender: FDA-Public Use
  Company Number: US-ROCHE-1838547

PATIENT
  Sex: Female

DRUGS (3)
  1. ZYPREXA [Concomitant]
     Active Substance: OLANZAPINE
     Route: 065
  2. KLONOPIN [Suspect]
     Active Substance: CLONAZEPAM
     Indication: INSOMNIA
     Dosage: SUBLINGUAL
     Route: 065
  3. CLONAZEPAM. [Concomitant]
     Active Substance: CLONAZEPAM
     Dosage: GENERIC CLONAZEPAM
     Route: 065

REACTIONS (7)
  - Drug ineffective [Unknown]
  - Malaise [Unknown]
  - Abdominal discomfort [Unknown]
  - Angina pectoris [Unknown]
  - Insomnia [Unknown]
  - Hepatic pain [Unknown]
  - Abdominal pain upper [Unknown]
